FAERS Safety Report 13920213 (Version 1)
Quarter: 2017Q3

REPORT INFORMATION
  Report Type: Spontaneous
  Country: US (occurrence: US)
  Receive Date: 20170830
  Receipt Date: 20170830
  Transmission Date: 20171127
  Serious: No
  Sender: FDA-Public Use
  Company Number: US-PFIZER INC-2017374575

PATIENT
  Age: 47 Year
  Sex: Female

DRUGS (1)
  1. PRISTIQ EXTENDED-RELEASE [Suspect]
     Active Substance: DESVENLAFAXINE SUCCINATE
     Dosage: 100 MG, UNK

REACTIONS (6)
  - Drug dose omission [Unknown]
  - Palpitations [Unknown]
  - Disturbance in attention [Unknown]
  - Pain in jaw [Unknown]
  - Trismus [Unknown]
  - Dizziness [Unknown]
